FAERS Safety Report 16281639 (Version 1)
Quarter: 2019Q2

REPORT INFORMATION
  Report Type: Spontaneous
  Country: US (occurrence: US)
  Receive Date: 20190402
  Receipt Date: 20190402
  Transmission Date: 20190711
  Serious: No
  Sender: FDA-Public Use
  Company Number: None

PATIENT
  Age: 40 Year
  Sex: Female

DRUGS (2)
  1. ENBREL [Suspect]
     Active Substance: ETANERCEPT
     Indication: SYNOVITIS
     Route: 058
     Dates: start: 20170919
  2. ENBREL [Suspect]
     Active Substance: ETANERCEPT
     Indication: TENOSYNOVITIS
     Route: 058
     Dates: start: 20170919

REACTIONS (2)
  - Hepatic enzyme increased [None]
  - Drug ineffective [None]

NARRATIVE: CASE EVENT DATE: 20190301
